FAERS Safety Report 11515181 (Version 2)
Quarter: 2016Q1

REPORT INFORMATION
  Report Type: Spontaneous
  Country: FR (occurrence: FR)
  Receive Date: 20150916
  Receipt Date: 20160121
  Transmission Date: 20160525
  Serious: Yes (Death, Congenital Anomaly, Other)
  Sender: FDA-Public Use
  Company Number: FR-BRISTOL-MYERS SQUIBB COMPANY-BMS-2015-059943

PATIENT

DRUGS (1)
  1. HYDREA [Suspect]
     Active Substance: HYDROXYUREA
     Indication: PRODUCT USED FOR UNKNOWN INDICATION
     Dosage: UNK UNK, QD
     Route: 064
     Dates: end: 201506

REACTIONS (4)
  - Holoprosencephaly [Fatal]
  - Dysmorphism [Fatal]
  - Foetal exposure during pregnancy [Recovered/Resolved]
  - Hypotelorism of orbit [Fatal]
